FAERS Safety Report 8764662 (Version 2)
Quarter: 2012Q4

REPORT INFORMATION
  Report Type: 
  Country: US (occurrence: US)
  Receive Date: 20120831
  Receipt Date: 20120921
  Transmission Date: 20130627
  Serious: Yes (Other)
  Sender: FDA-Public Use
  Company Number: US-PFIZER INC-2012211923

PATIENT
  Age: 53 Year
  Sex: Female
  Weight: 79.37 kg

DRUGS (7)
  1. GABAPENTIN [Suspect]
     Indication: MYALGIA
     Dosage: 900 mg (three capsule of 300mg), 1x/day
     Route: 048
  2. GABAPENTIN [Suspect]
     Dosage: UNK
     Route: 048
  3. LYRICA [Suspect]
     Indication: FIBROMYALGIA
     Dosage: UNK
     Route: 048
     Dates: start: 201006, end: 201007
  4. HYDROCODONE [Concomitant]
     Indication: PAIN
     Dosage: UNK
  5. SIMVASTATIN [Concomitant]
     Dosage: 20 mg, 1x/day
  6. DIVALPROEX [Concomitant]
     Dosage: 500 mg, 5x/day
  7. BUSPIRONE [Concomitant]
     Dosage: 30 mg, 2x/day

REACTIONS (4)
  - Fibromyalgia [Unknown]
  - Hypersensitivity [Recovered/Resolved]
  - Diplopia [Recovered/Resolved]
  - Vision blurred [Recovered/Resolved]
